FAERS Safety Report 5419874-0 (Version None)
Quarter: 2007Q3

REPORT INFORMATION
  Report Type: 
  Country: None (occurrence: None)
  Receive Date: 20070820
  Receipt Date: 20070627
  Transmission Date: 20080115
  Serious: Yes (Other)
  Sender: FDA-Public Use
  Company Number: US-PURDUE-USA_2007_0028166

PATIENT
  Sex: Male
  Weight: 118 kg

DRUGS (4)
  1. OXYCONTIN [Suspect]
     Indication: PAIN
     Dosage: UNK, SEE TEXT
     Dates: start: 19950705, end: 19991201
  2. ATIVAN [Concomitant]
  3. LORCET-HD [Concomitant]
  4. ELAVIL [Concomitant]
     Dosage: 100 MG, UNK

REACTIONS (11)
  - ASTHENIA [None]
  - CONFUSIONAL STATE [None]
  - DEPRESSION [None]
  - DIZZINESS [None]
  - DRUG DEPENDENCE [None]
  - NAUSEA [None]
  - NERVOUSNESS [None]
  - RASH [None]
  - SKIN INFLAMMATION [None]
  - SUICIDAL IDEATION [None]
  - SYNCOPE [None]
